FAERS Safety Report 8823396 (Version 2)
Quarter: 2012Q4

REPORT INFORMATION
  Report Type: 
  Country: US (occurrence: US)
  Receive Date: 20121003
  Receipt Date: 20121008
  Transmission Date: 20130627
  Serious: No
  Sender: FDA-Public Use
  Company Number: US-TEVA-360998USA

PATIENT

DRUGS (1)
  1. COPAXONE [Suspect]

REACTIONS (1)
  - Drug hypersensitivity [Unknown]
